FAERS Safety Report 7871810-3 (Version None)
Quarter: 2011Q4

REPORT INFORMATION
  Report Type: 
  Country: None (occurrence: None)
  Receive Date: 20111029
  Receipt Date: 20110308
  Transmission Date: 20120403
  Serious: No
  Sender: FDA-Public Use
  Company Number: US-AMGEN-USASP2011009394

PATIENT
  Age: 54 Year
  Sex: Male

DRUGS (1)
  1. ENBREL [Suspect]
     Indication: PSORIATIC ARTHROPATHY
     Dosage: 50 MG, QWK
     Dates: start: 20110118

REACTIONS (7)
  - PYREXIA [None]
  - FEELING COLD [None]
  - DIARRHOEA [None]
  - COUGH [None]
  - INJECTION SITE ERYTHEMA [None]
  - CHILLS [None]
  - INJECTION SITE HAEMATOMA [None]
